FAERS Safety Report 19867070 (Version 1)
Quarter: 2021Q3

REPORT INFORMATION
  Report Type: Spontaneous
  Country: US (occurrence: US)
  Receive Date: 20210922
  Receipt Date: 20210922
  Transmission Date: 20211014
  Serious: No
  Sender: FDA-Public Use
  Company Number: US-AMGEN-USASP2021144884

PATIENT
  Age: 59 Year
  Sex: Female

DRUGS (5)
  1. TRIAMCINOLON [TRIAMCINOLONE] [Concomitant]
     Active Substance: TRIAMCINOLONE
  2. PROGESTERONE. [Concomitant]
     Active Substance: PROGESTERONE
  3. CLINDAMYCIN. [Concomitant]
     Active Substance: CLINDAMYCIN
  4. OTEZLA [Suspect]
     Active Substance: APREMILAST
     Indication: PSORIASIS
     Dosage: 30 MILLIGRAM, BID
     Route: 048
     Dates: start: 20210501
  5. CEPHALEXINE [Concomitant]
     Active Substance: CEPHALEXIN

REACTIONS (1)
  - Intentional product misuse [Not Recovered/Not Resolved]

NARRATIVE: CASE EVENT DATE: 20210913
